FAERS Safety Report 24397511 (Version 1)
Quarter: 2024Q4

REPORT INFORMATION
  Report Type: Spontaneous
  Country: US (occurrence: US)
  Receive Date: 20241004
  Receipt Date: 20241004
  Transmission Date: 20250114
  Serious: Yes (Life-Threatening, Hospitalization, Other)
  Sender: TORRENT
  Company Number: US-TORRENT-00013770

PATIENT
  Age: 59 Year
  Sex: Female

DRUGS (2)
  1. DAPSONE [Suspect]
     Active Substance: DAPSONE
     Indication: Antifungal prophylaxis
     Dosage: UNKNOWN
     Route: 065
  2. PREDNISONE [Concomitant]
     Active Substance: PREDNISONE
     Indication: Antifungal prophylaxis
     Dosage: UNKNOWN
     Route: 065

REACTIONS (2)
  - Hypoxia [Recovered/Resolved]
  - Methaemoglobinaemia [Recovered/Resolved]
